FAERS Safety Report 5480225-7 (Version None)
Quarter: 2007Q4

REPORT INFORMATION
  Report Type: 
  Country: None (occurrence: None)
  Receive Date: 20071009
  Receipt Date: 20070926
  Transmission Date: 20080405
  Serious: Yes (Death)
  Sender: FDA-Public Use
  Company Number: DE-ELI_LILLY_AND_COMPANY-DE200709006006

PATIENT
  Sex: Female
  Weight: 75 kg

DRUGS (2)
  1. OLANZAPINE [Suspect]
     Indication: MANIA
     Dosage: 10 MG, UNK
     Route: 048
     Dates: start: 20070224
  2. ERGENYL [Concomitant]
     Indication: MANIA
     Dosage: 600 MG, UNK
     Route: 048
     Dates: start: 20070224

REACTIONS (1)
  - SUDDEN CARDIAC DEATH [None]
